FAERS Safety Report 6848657-X (Version None)
Quarter: 2010Q3

REPORT INFORMATION
  Report Type: 
  Country: None (occurrence: None)
  Receive Date: 20100716
  Receipt Date: 20070904
  Transmission Date: 20110219
  Serious: No
  Sender: FDA-Public Use
  Company Number: US-PFIZER INC-2007074798

PATIENT
  Sex: Female
  Weight: 53.5 kg

DRUGS (4)
  1. CHANTIX [Suspect]
     Indication: SMOKING CESSATION THERAPY
     Route: 048
     Dates: start: 20070801
  2. CELEBREX [Concomitant]
     Indication: ARTHRITIS
  3. FOSAMAX [Concomitant]
     Indication: OSTEOPOROSIS
  4. MULTI-VITAMINS [Concomitant]

REACTIONS (2)
  - ABDOMINAL PAIN [None]
  - FLATULENCE [None]
